FAERS Safety Report 5849722-6 (Version None)
Quarter: 2008Q3

REPORT INFORMATION
  Report Type: 
  Country: None (occurrence: None)
  Receive Date: 20080819
  Receipt Date: 20080811
  Transmission Date: 20090109
  Serious: Yes (Other)
  Sender: FDA-Public Use
  Company Number: SE-JNJFOC-20080802633

PATIENT
  Age: 16 Year
  Sex: Male

DRUGS (1)
  1. CONCERTA [Suspect]
     Indication: DRUG USE FOR UNKNOWN INDICATION
     Dosage: SINCE 4 YEARS
     Route: 048

REACTIONS (4)
  - DECREASED APPETITE [None]
  - GROWTH RETARDATION [None]
  - INSOMNIA [None]
  - SKIN DISORDER [None]
